FAERS Safety Report 9283775 (Version 3)
Quarter: 2013Q2

REPORT INFORMATION
  Report Type: Spontaneous
  Country: GR (occurrence: GR)
  Receive Date: 20130510
  Receipt Date: 20130620
  Transmission Date: 20140414
  Serious: Yes (Death, Hospitalization)
  Sender: FDA-Public Use
  Company Number: GR-009507513-1305GRC000807

PATIENT
  Age: 73 Year
  Sex: Male
  Weight: 86 kg

DRUGS (1)
  1. ONCOTICE [Suspect]
     Indication: BLADDER CANCER
     Route: 043
     Dates: start: 20130424, end: 20130424

REACTIONS (3)
  - Urinary retention [Fatal]
  - Pyrexia [Fatal]
  - Chills [Fatal]
